FAERS Safety Report 4962171-8 (Version None)
Quarter: 2006Q2

REPORT INFORMATION
  Report Type: 
  Country: None (occurrence: None)
  Receive Date: 20060403
  Receipt Date: 20060403
  Transmission Date: 20061013
  Serious: Yes (Hospitalization)
  Sender: FDA-Public Use
  Company Number: None

PATIENT
  Age: 77 Year
  Sex: Male
  Weight: 121.23 kg

DRUGS (1)
  1. SUCCINYLCHLOLINE CHLORIDE INJ [Suspect]
     Indication: STENT PLACEMENT
     Dosage: IV
     Route: 042
     Dates: start: 20060108, end: 20060108

REACTIONS (6)
  - ABDOMINAL PAIN [None]
  - CHEST PAIN [None]
  - DIARRHOEA [None]
  - INADEQUATE ANALGESIA [None]
  - MYALGIA [None]
  - PAIN IN EXTREMITY [None]
